FAERS Safety Report 10370241 (Version 1)
Quarter: 2014Q3

REPORT INFORMATION
  Report Type: Spontaneous
  Country: US (occurrence: None)
  Receive Date: 20140806
  Receipt Date: 20140806
  Transmission Date: 20150326
  Serious: Yes (Life-Threatening, Hospitalization)
  Sender: FDA-Public Use
  Company Number: None

PATIENT
  Age: 18 Month
  Sex: Female
  Weight: 12 kg

DRUGS (1)
  1. DEER BRAND CAMPHOR BAR 96% [Suspect]
     Active Substance: CAMPHOR
     Indication: NASAL DECONGESTION THERAPY
     Dates: start: 20140506, end: 20140506

REACTIONS (2)
  - Accidental exposure to product by child [None]
  - Convulsion [None]

NARRATIVE: CASE EVENT DATE: 20140506
